FAERS Safety Report 6724772-6 (Version None)
Quarter: 2010Q2

REPORT INFORMATION
  Report Type: 
  Country: None (occurrence: None)
  Receive Date: 20100513
  Receipt Date: 20100507
  Transmission Date: 20101027
  Serious: Yes (Death, Other)
  Sender: FDA-Public Use
  Company Number: JP-BAYER-201012209BYL

PATIENT
  Age: 65 Year
  Sex: Male
  Weight: 59 kg

DRUGS (12)
  1. NEXAVAR [Suspect]
     Indication: HEPATIC NEOPLASM MALIGNANT
     Dosage: UNIT DOSE: 200 MG
     Route: 048
     Dates: start: 20090803
  2. NEXAVAR [Suspect]
     Dosage: UNIT DOSE: 200 MG
     Route: 048
     Dates: start: 20100208, end: 20100303
  3. GASMOTIN [Concomitant]
     Dosage: UNIT DOSE: 5 MG
     Route: 048
     Dates: start: 20090422
  4. MUCOSTA [Concomitant]
     Dosage: UNIT DOSE: 100 MG
     Route: 048
     Dates: start: 20090320
  5. TAKEPRON [Concomitant]
     Dosage: UNIT DOSE: 15 MG
     Route: 048
     Dates: start: 20090803, end: 20091213
  6. C-PARA [Concomitant]
     Dosage: UNIT DOSE: 2 ML
     Route: 042
     Dates: start: 20090317
  7. SOLITA-T NO.3 [Concomitant]
     Dosage: UNIT DOSE: 200 ML
     Route: 042
     Dates: start: 20090317
  8. SOLITA-T NO.3-G [Concomitant]
     Dosage: UNIT DOSE: 200 ML
     Route: 042
  9. NEO-MINOPHAGEN C [Concomitant]
     Dosage: UNIT DOSE: 20 ML
     Route: 042
     Dates: start: 20090225
  10. DAIKENTYUTO [Concomitant]
     Route: 048
     Dates: start: 20090428
  11. BUSCOPAN [Concomitant]
     Dosage: UNIT DOSE: 20 MG
     Route: 042
     Dates: start: 20090918
  12. MYONAL [Concomitant]
     Dosage: UNIT DOSE: 50 MG
     Route: 048
     Dates: start: 20091116

REACTIONS (13)
  - ABDOMINAL DISTENSION [None]
  - ALOPECIA [None]
  - BLOOD BILIRUBIN INCREASED [None]
  - DECREASED APPETITE [None]
  - DIARRHOEA [None]
  - DYSPHONIA [None]
  - HEPATIC NEOPLASM MALIGNANT [None]
  - MUCOUS MEMBRANE DISORDER [None]
  - NAUSEA [None]
  - PALMAR-PLANTAR ERYTHRODYSAESTHESIA SYNDROME [None]
  - RASH [None]
  - TETANY [None]
  - VOMITING [None]
